FAERS Safety Report 20645376 (Version 2)
Quarter: 2022Q2

REPORT INFORMATION
  Report Type: Report from Study
  Country: CA (occurrence: CA)
  Receive Date: 20220328
  Receipt Date: 20220425
  Transmission Date: 20220721
  Serious: Yes (Other)
  Sender: FDA-Public Use
  Company Number: CA-FERRINGPH-2022FE01355

PATIENT

DRUGS (4)
  1. DEGARELIX [Suspect]
     Active Substance: DEGARELIX
     Indication: Prostate cancer
     Dosage: 80 MG, MONTHLY
     Route: 058
     Dates: start: 20220218, end: 20220218
  2. DEGARELIX [Suspect]
     Active Substance: DEGARELIX
     Dosage: 240 MG, ONCE/SINGLE
     Route: 058
     Dates: start: 20220121, end: 20220121
  3. CALCIUM [Suspect]
     Active Substance: CALCIUM
     Indication: Supplementation therapy
     Dosage: 1200 MG, DAILY
     Route: 065
  4. CALCIUM [Suspect]
     Active Substance: CALCIUM
     Dosage: 600 MG, DAILY
     Route: 065

REACTIONS (8)
  - Neuralgia [Recovered/Resolved]
  - Rash erythematous [Recovered/Resolved]
  - Throat irritation [Recovered/Resolved]
  - Swollen tongue [Recovered/Resolved]
  - Swelling face [Recovered/Resolved]
  - Drug hypersensitivity [Recovered/Resolved]
  - Injection site vesicles [Recovered/Resolved]
  - Injection site pain [Recovered/Resolved]

NARRATIVE: CASE EVENT DATE: 20220201
